FAERS Safety Report 22039565 (Version 1)
Quarter: 2023Q1

REPORT INFORMATION
  Report Type: Spontaneous
  Country: US (occurrence: None)
  Receive Date: 20230225
  Receipt Date: 20230225
  Transmission Date: 20230418
  Serious: Yes (Other)
  Sender: FDA-Public Use
  Company Number: None

PATIENT
  Age: 48 Year
  Sex: Female
  Weight: 83.25 kg

DRUGS (6)
  1. ARTIFICIAL TEARS LUBRICANT EYE DROPS (CARBOXYMETHYLCELLULOSE SODIUM) [Suspect]
     Active Substance: CARBOXYMETHYLCELLULOSE SODIUM
     Indication: Dry eye
     Dosage: FREQUENCY : AS NEEDED;?
     Route: 047
     Dates: start: 20230110, end: 20230224
  2. VITAMINS [Concomitant]
     Active Substance: VITAMINS
  3. IRON [Concomitant]
     Active Substance: IRON
  4. MAGNESIUM [Concomitant]
     Active Substance: MAGNESIUM
  5. VITAMIN C [Concomitant]
     Active Substance: ASCORBIC ACID
  6. BIOTIN [Concomitant]
     Active Substance: BIOTIN

REACTIONS (3)
  - Vision blurred [None]
  - Conjunctivitis [None]
  - Instillation site irritation [None]

NARRATIVE: CASE EVENT DATE: 20230111
